FAERS Safety Report 4315075-8 (Version None)
Quarter: 2004Q1

REPORT INFORMATION
  Report Type: 
  Country: None (occurrence: None)
  Receive Date: 20040310
  Receipt Date: 20040304
  Transmission Date: 20041129
  Serious: Yes (Hospitalization)
  Sender: FDA-Public Use
  Company Number: FR-ROCHE-360725

PATIENT
  Age: 63 Year
  Sex: Female
  Weight: 76 kg

DRUGS (3)
  1. RIVOTRIL [Suspect]
     Indication: EPILEPSY
     Route: 048
  2. EFFEXOR [Suspect]
     Indication: DRUG USE FOR UNKNOWN INDICATION
     Route: 048
  3. CIFLOX [Suspect]
     Indication: DRUG USE FOR UNKNOWN INDICATION
     Route: 048
     Dates: start: 20040130, end: 20040207

REACTIONS (1)
  - RENAL FAILURE ACUTE [None]
